FAERS Safety Report 6531553-5 (Version None)
Quarter: 2010Q1

REPORT INFORMATION
  Report Type: 
  Country: None (occurrence: None)
  Receive Date: 20100108
  Receipt Date: 20091219
  Transmission Date: 20100710
  Serious: Yes (Life-Threatening)
  Sender: FDA-Public Use
  Company Number: HU-SANOFI-AVENTIS-200916745GDDC

PATIENT
  Age: 67 Year
  Sex: Female

DRUGS (16)
  1. INSULIN GLARGINE [Suspect]
     Indication: DIABETES MELLITUS
     Route: 058
     Dates: start: 20080708
  2. ORAL ANTIDIABETICS [Concomitant]
     Indication: DIABETES MELLITUS
  3. METFORMIN HCL [Concomitant]
     Indication: DIABETES MELLITUS
     Dosage: DOSE UNIT: 850 MG
     Route: 048
  4. GLIMEPIRIDE [Concomitant]
     Indication: DIABETES MELLITUS
     Route: 048
  5. CORVASAL [Concomitant]
     Route: 048
  6. NEBILET [Concomitant]
     Route: 048
  7. ASPIRIN [Concomitant]
     Dosage: DOSE UNIT: 100 MG
     Route: 048
  8. TRITACE [Concomitant]
     Indication: HYPERTENSION
     Dosage: DOSE AS USED: 0.5-0-1 MG
     Route: 048
  9. SIMVASTATIN [Concomitant]
     Dosage: DOSE UNIT: 20 MG
     Route: 048
  10. CHINOTAL [Concomitant]
     Route: 048
  11. CAVINTON [Concomitant]
     Route: 048
  12. ALPRAZOLAM [Concomitant]
     Indication: DEPRESSION
     Dosage: DOSE UNIT: .25
     Route: 048
  13. LANSOPRAZOLE [Concomitant]
     Dosage: DOSE UNIT: 30 MG
     Route: 048
  14. LYRICA [Concomitant]
     Indication: POLYNEUROPATHY
     Dosage: DOSE UNIT: 150 MG
     Route: 047
  15. BENFOGAMMA [Concomitant]
     Route: 048
  16. ANTINEOPLASTIC AGENTS [Concomitant]

REACTIONS (3)
  - HEPATIC NEOPLASM [None]
  - METASTASES TO LUNG [None]
  - PANCREATIC CARCINOMA [None]
